FAERS Safety Report 9886744 (Version 1)
Quarter: 2014Q1

REPORT INFORMATION
  Report Type: Spontaneous
  Country: MX (occurrence: MX)
  Receive Date: 20140210
  Receipt Date: 20140210
  Transmission Date: 20141002
  Serious: Yes (Other)
  Sender: FDA-Public Use
  Company Number: PHHY2014MX016347

PATIENT
  Age: 62 Year
  Sex: Female

DRUGS (3)
  1. DIOVAN [Suspect]
     Indication: HYPERTENSION
     Dosage: 0.5 DF(80MG), DAILY
     Route: 048
  2. DIOVAN [Suspect]
     Dosage: 0.5 DF (160 MG), BID
     Route: 048
     Dates: start: 20140131
  3. OMEPRAZOLE [Concomitant]
     Indication: GASTRITIS
     Dosage: 2 UKN, UNK

REACTIONS (6)
  - Hernia [Not Recovered/Not Resolved]
  - Bronchitis [Recovered/Resolved]
  - Increased upper airway secretion [Not Recovered/Not Resolved]
  - Arrhythmia [Not Recovered/Not Resolved]
  - Drug prescribing error [Not Recovered/Not Resolved]
  - Wrong technique in drug usage process [Not Recovered/Not Resolved]
